FAERS Safety Report 4264534-5 (Version None)
Quarter: 2004Q1

REPORT INFORMATION
  Report Type: 
  Country: None (occurrence: None)
  Receive Date: 20040102
  Receipt Date: 20031218
  Transmission Date: 20041129
  Serious: Yes (Hospitalization)
  Sender: FDA-Public Use
  Company Number: USA031255043

PATIENT
  Age: 71 Year
  Sex: Female
  Weight: 95 kg

DRUGS (1)
  1. HUMULIN-HUMAN INSULIN(RDNA) : 30% REGULAR, 70% NPH9H [Suspect]
     Indication: DIABETES MELLITUS
     Dosage: 25 U/2 DAY
     Dates: start: 20000101

REACTIONS (3)
  - BLOOD GLUCOSE INCREASED [None]
  - PNEUMONIA [None]
  - URINARY TRACT INFECTION [None]
